FAERS Safety Report 23350903 (Version 1)
Quarter: 2023Q4

REPORT INFORMATION
  Report Type: Spontaneous
  Country: US (occurrence: US)
  Receive Date: 20231229
  Receipt Date: 20231229
  Transmission Date: 20240109
  Serious: No
  Sender: FDA-Public Use
  Company Number: US-JNJFOC-20231216820

PATIENT
  Age: 58 Year
  Sex: Male

DRUGS (5)
  1. ZYRTEC [Suspect]
     Active Substance: CETIRIZINE HYDROCHLORIDE
     Indication: Allergy to animal
     Dosage: ONCE IN THE PAST 4 WEEKS
     Route: 065
  2. ZYRTEC [Suspect]
     Active Substance: CETIRIZINE HYDROCHLORIDE
     Indication: Multiple allergies
  3. DUPIXENT [Concomitant]
     Active Substance: DUPILUMAB
     Indication: Multiple allergies
     Route: 058
     Dates: start: 202306
  4. DUPIXENT [Concomitant]
     Active Substance: DUPILUMAB
     Indication: Asthma
     Route: 058
     Dates: start: 2023
  5. DUPIXENT [Concomitant]
     Active Substance: DUPILUMAB
     Indication: Nasal polyps

REACTIONS (3)
  - Gastrointestinal disorder [Unknown]
  - Vomiting [Unknown]
  - Product use in unapproved indication [Unknown]

NARRATIVE: CASE EVENT DATE: 20230601
